FAERS Safety Report 6110735-0 (Version None)
Quarter: 2009Q1

REPORT INFORMATION
  Report Type: 
  Country: None (occurrence: None)
  Receive Date: 20090309
  Receipt Date: 20090303
  Transmission Date: 20090719
  Serious: Yes (Life-Threatening, Hospitalization, Other)
  Sender: FDA-Public Use
  Company Number: ADE2009-0465

PATIENT
  Age: 39 Year
  Sex: Female

DRUGS (1)
  1. SIMVASTATIN [Suspect]

REACTIONS (8)
  - COMPARTMENT SYNDROME [None]
  - HAEMODIALYSIS [None]
  - INTENTIONAL DRUG MISUSE [None]
  - MUSCLE NECROSIS [None]
  - MYOGLOBINURIA [None]
  - OVERDOSE [None]
  - PERIPHERAL ISCHAEMIA [None]
  - RENAL FAILURE ACUTE [None]
